FAERS Safety Report 9716496 (Version 2)
Quarter: 2014Q1

REPORT INFORMATION
  Report Type: Spontaneous
  Country: DE (occurrence: DE)
  Receive Date: 20131127
  Receipt Date: 20140221
  Transmission Date: 20141002
  Serious: Yes (Hospitalization)
  Sender: FDA-Public Use
  Company Number: DE-BRISTOL-MYERS SQUIBB COMPANY-19830850

PATIENT
  Age: 13 Year
  Sex: Female
  Weight: 65 kg

DRUGS (1)
  1. ABILIFY [Suspect]
     Indication: TOURETTE^S DISORDER
     Route: 048
     Dates: start: 201303, end: 20131007

REACTIONS (4)
  - Dystonia [Recovered/Resolved]
  - Eyelid ptosis [Recovered/Resolved]
  - Paraesthesia [Recovered/Resolved]
  - VIIth nerve paralysis [Recovered/Resolved]
